FAERS Safety Report 15647792 (Version 3)
Quarter: 2019Q1

REPORT INFORMATION
  Report Type: Spontaneous
  Country: JP (occurrence: JP)
  Receive Date: 20181122
  Receipt Date: 20190124
  Transmission Date: 20190417
  Serious: Yes (Hospitalization, Other)
  Sender: FDA-Public Use
  Company Number: JP-PFIZER INC-2018476448

PATIENT
  Age: 78 Year
  Sex: Male

DRUGS (3)
  1. XALKORI [Suspect]
     Active Substance: CRIZOTINIB
     Indication: LUNG NEOPLASM MALIGNANT
     Dosage: 250 MG, 2X/DAY
     Route: 048
     Dates: start: 20180928, end: 20181005
  2. XALKORI [Suspect]
     Active Substance: CRIZOTINIB
     Dosage: 250 MG, 1X/DAY
     Route: 048
     Dates: start: 20181016, end: 20181113
  3. XALKORI [Suspect]
     Active Substance: CRIZOTINIB
     Dosage: 250 MG, 2X/DAY
     Route: 048
     Dates: start: 20181010, end: 20181013

REACTIONS (2)
  - Renal impairment [Recovered/Resolved]
  - Condition aggravated [Recovered/Resolved]

NARRATIVE: CASE EVENT DATE: 20181004
